FAERS Safety Report 6383473-7 (Version None)
Quarter: 2009Q3

REPORT INFORMATION
  Report Type: 
  Country: None (occurrence: None)
  Receive Date: 20090928
  Receipt Date: 20090918
  Transmission Date: 20100115
  Serious: Yes (Other)
  Sender: FDA-Public Use
  Company Number: ADR28512009

PATIENT
  Age: 35 Year
  Sex: Female

DRUGS (2)
  1. SUMATRIPTAN (MFR: UNKNOWN) [Suspect]
     Dosage: 100 MG - 1 DAY
  2. DICLOFENAC [Concomitant]

REACTIONS (2)
  - COLITIS ISCHAEMIC [None]
  - COLITIS ULCERATIVE [None]
